FAERS Safety Report 6197388-0 (Version None)
Quarter: 2009Q2

REPORT INFORMATION
  Report Type: 
  Country: None (occurrence: None)
  Receive Date: 20090521
  Receipt Date: 20090514
  Transmission Date: 20091009
  Serious: Yes (Other)
  Sender: FDA-Public Use
  Company Number: PHEH2008US07164

PATIENT
  Sex: Male

DRUGS (3)
  1. ZOMETA [Suspect]
     Dosage: MONTHLY
  2. ZOLADEX [Concomitant]
  3. RADIATION TREATMENT [Concomitant]

REACTIONS (8)
  - ANHEDONIA [None]
  - ANXIETY [None]
  - INJURY [None]
  - MENTAL DISORDER [None]
  - METASTASES TO BONE [None]
  - OSTEONECROSIS [None]
  - PAIN [None]
  - PHYSICAL DISABILITY [None]
